FAERS Safety Report 19651604 (Version 3)
Quarter: 2021Q3

REPORT INFORMATION
  Report Type: Report from Study
  Country: US (occurrence: US)
  Receive Date: 20210803
  Receipt Date: 20210828
  Transmission Date: 20211014
  Serious: Yes (Other)
  Sender: FDA-Public Use
  Company Number: NVSC2021US171958

PATIENT
  Sex: Male

DRUGS (1)
  1. COSENTYX [Suspect]
     Active Substance: SECUKINUMAB
     Indication: PSORIATIC ARTHROPATHY
     Dosage: 300 MG, QMO
     Route: 058

REACTIONS (6)
  - Condition aggravated [Unknown]
  - Pain [Unknown]
  - Arthralgia [Unknown]
  - Pneumonia [Unknown]
  - Peripheral swelling [Unknown]
  - Skin laceration [Unknown]
